FAERS Safety Report 19419162 (Version 2)
Quarter: 2021Q2

REPORT INFORMATION
  Report Type: Spontaneous
  Country: NO (occurrence: NO)
  Receive Date: 20210615
  Receipt Date: 20210624
  Transmission Date: 20210717
  Serious: Yes (Other)
  Sender: FDA-Public Use
  Company Number: NO-TOPROL-2021000120

PATIENT
  Age: 41 Year
  Sex: Female

DRUGS (4)
  1. VAXZEVRIA [Interacting]
     Active Substance: AZD-1222
     Dosage: DOSE NO. IN SERIES: 1 VACCINATION SITE: LEFTARM
     Route: 030
     Dates: start: 20210218
  2. ZOCOR [Concomitant]
     Active Substance: SIMVASTATIN
     Dosage: 1 DOSAGE FORM
     Route: 065
  3. METOPROLOL TARTRATE. [Suspect]
     Active Substance: METOPROLOL TARTRATE
     Dosage: 1 DOSAGE FORM, QD (50 MG MORNING)
     Route: 048
     Dates: start: 2005, end: 202103
  4. NEXIUM [Concomitant]
     Active Substance: ESOMEPRAZOLE MAGNESIUM
     Route: 065

REACTIONS (11)
  - Syncope [Recovered/Resolved]
  - Choking sensation [Recovered/Resolved]
  - Migraine [Recovered/Resolved]
  - Peripheral swelling [Recovering/Resolving]
  - Musculoskeletal stiffness [Recovering/Resolving]
  - Musculoskeletal stiffness [Recovered/Resolved]
  - Drug interaction [Unknown]
  - Chills [Recovered/Resolved]
  - Headache [Recovered/Resolved]
  - Blood pressure fluctuation [Recovered/Resolved]
  - Dizziness [Recovered/Resolved]

NARRATIVE: CASE EVENT DATE: 20210218
